FAERS Safety Report 21814971 (Version 1)
Quarter: 2023Q1

REPORT INFORMATION
  Report Type: Spontaneous
  Country: ES (occurrence: ES)
  Receive Date: 20230104
  Receipt Date: 20230104
  Transmission Date: 20230417
  Serious: Yes (Other)
  Sender: FDA-Public Use
  Company Number: ES-STERISCIENCE B.V.-2022-ST-000510

PATIENT
  Age: 53 Year
  Sex: Male

DRUGS (3)
  1. BUPIVACAINE [Suspect]
     Active Substance: BUPIVACAINE
     Indication: Anaesthesia
     Dosage: 4ML PERIBULBAR BLOCK WITH BUPIVACAINE 0.75%, LIDOCAINE 5% AND HYALURONIDASE 150IU.
     Route: 065
  2. LIDOCAINE [Suspect]
     Active Substance: LIDOCAINE
     Indication: Anaesthesia
     Dosage: 4ML PERIBULBAR BLOCK WITH BUPIVACAINE 0.75%, LIDOCAINE 5% AND HYALURONIDASE 150IU.
     Route: 065
  3. HYALURONIDASE [Suspect]
     Active Substance: HYALURONIDASE
     Indication: Anaesthesia
     Dosage: 4ML PERIBULBAR BLOCK WITH BUPIVACAINE 0.75%, LIDOCAINE 5% AND HYALURONIDASE 150IU.
     Route: 065

REACTIONS (1)
  - Acute macular neuroretinopathy [None]
